FAERS Safety Report 11218470 (Version 1)
Quarter: 2015Q2

REPORT INFORMATION
  Report Type: Spontaneous
  Country: FR (occurrence: None)
  Receive Date: 20150623
  Receipt Date: 20150623
  Transmission Date: 20150821
  Serious: Yes (Hospitalization, Disabling, Other)
  Sender: FDA-Public Use
  Company Number: CO-PL-FR-2015-009

PATIENT
  Age: 32 Year
  Sex: Male

DRUGS (2)
  1. DOXYCYCLINE (UNKNOWN) (DOXYCYCLINE HYCLATE) [Concomitant]
  2. PLAQUENIL [Suspect]
     Active Substance: HYDROXYCHLOROQUINE SULFATE
     Indication: Q FEVER
     Route: 048
     Dates: start: 201006, end: 201212

REACTIONS (8)
  - Influenza [None]
  - Splenomegaly [None]
  - Product use issue [None]
  - Gastrointestinal disorder [None]
  - Transaminases abnormal [None]
  - Blood alkaline phosphatase increased [None]
  - Pyrexia [None]
  - Gamma-glutamyltransferase increased [None]

NARRATIVE: CASE EVENT DATE: 2015
